FAERS Safety Report 23319551 (Version 1)
Quarter: 2023Q4

REPORT INFORMATION
  Report Type: Other
  Country: US (occurrence: None)
  Receive Date: 20231220
  Receipt Date: 20231220
  Transmission Date: 20240110
  Serious: Yes (Other)
  Sender: FDA-Public Use
  Company Number: US-ROCHE-3351466

PATIENT
  Age: 72 Year
  Sex: Male

DRUGS (2)
  1. ALTEPLASE [Suspect]
     Active Substance: ALTEPLASE
     Indication: Ischaemic stroke
     Dosage: 90MG, WITH 10% AS A BOLUS AND THE REMAINDER AS AN IV DRIP OVER THE NEXT HOUR,
     Route: 040
  2. ALTEPLASE [Suspect]
     Active Substance: ALTEPLASE
     Dosage: 90MG, WITH 10% AS A BOLUS AND THE REMAINDER AS AN IV DRIP OVER THE NEXT HOUR,
     Route: 041

REACTIONS (1)
  - Angioedema [Recovered/Resolved]
